FAERS Safety Report 5465557-0 (Version None)
Quarter: 2007Q3

REPORT INFORMATION
  Report Type: 
  Country: None (occurrence: None)
  Receive Date: 20070924
  Receipt Date: 19981013
  Transmission Date: 20080115
  Serious: Yes (Death, Hospitalization)
  Sender: FDA-Public Use
  Company Number: FR-PFIZER INC-2006122505

PATIENT
  Sex: Male

DRUGS (6)
  1. IRINOTECAN HCL [Suspect]
     Indication: RECTAL CANCER
     Dosage: DAILY DOSE:320MG
     Route: 042
     Dates: start: 19980826, end: 19980828
  2. FLUOROURACIL [Suspect]
     Indication: RECTAL CANCER
     Dosage: DAILY DOSE:1050MG
     Route: 042
     Dates: start: 19980826, end: 19980828
  3. FOLINIC ACID [Suspect]
     Indication: RECTAL CANCER
     Dosage: DAILY DOSE:180MG
     Route: 042
     Dates: start: 19980826, end: 19980828
  4. DI-ANTALVIC [Concomitant]
  5. INIPOMP [Concomitant]
  6. LEXOMIL [Concomitant]

REACTIONS (3)
  - DEHYDRATION [None]
  - DIARRHOEA [None]
  - HEPATIC ENCEPHALOPATHY [None]
